FAERS Safety Report 6441563-4 (Version None)
Quarter: 2009Q4

REPORT INFORMATION
  Report Type: 
  Country: None (occurrence: None)
  Receive Date: 20091116
  Receipt Date: 20091105
  Transmission Date: 20100525
  Serious: Yes (Hospitalization)
  Sender: FDA-Public Use
  Company Number: CA-JNJFOC-20091102565

PATIENT
  Sex: Female
  Weight: 95.26 kg

DRUGS (13)
  1. REMICADE [Suspect]
     Indication: RHEUMATOID ARTHRITIS
     Route: 042
  2. METHOTREXATE [Concomitant]
     Indication: RHEUMATOID ARTHRITIS
     Route: 048
  3. ATIVAN [Concomitant]
     Indication: INSOMNIA
     Route: 048
  4. QUININE [Concomitant]
     Indication: MUSCLE SPASMS
     Route: 048
  5. SYMBICORT [Concomitant]
     Indication: CHRONIC OBSTRUCTIVE PULMONARY DISEASE
     Route: 055
  6. XENICAL [Concomitant]
     Indication: OBESITY
     Route: 048
  7. ASPIRIN [Concomitant]
     Indication: ARTERIOSCLEROSIS
     Route: 048
  8. COVERSYL [Concomitant]
     Indication: SMOKING CESSATION THERAPY
     Route: 048
  9. AMIODARONE HCL [Concomitant]
     Indication: CARDIOVASCULAR EVENT PROPHYLAXIS
     Route: 048
  10. FUROSEMIDE [Concomitant]
     Route: 048
  11. FUROSEMIDE [Concomitant]
     Indication: DIURETIC THERAPY
     Route: 048
  12. SLOW-K [Concomitant]
     Indication: PROPHYLAXIS
     Route: 048
  13. ALBUTEROL [Concomitant]
     Indication: CHRONIC OBSTRUCTIVE PULMONARY DISEASE
     Route: 055

REACTIONS (1)
  - CHRONIC OBSTRUCTIVE PULMONARY DISEASE [None]
